FAERS Safety Report 5061026-0 (Version None)
Quarter: 2006Q3

REPORT INFORMATION
  Report Type: 
  Country: None (occurrence: None)
  Receive Date: 20060725
  Receipt Date: 20050721
  Transmission Date: 20061208
  Serious: Yes (Hospitalization)
  Sender: FDA-Public Use
  Company Number: DE-ROCHE-411630

PATIENT
  Age: 50 Year
  Sex: Female
  Weight: 52 kg

DRUGS (14)
  1. PEG-INTERFERON A-2A (RO 25-8310) [Suspect]
     Route: 058
     Dates: start: 20040825, end: 20050616
  2. PEG-INTERFERON A-2A (RO 25-8310) [Suspect]
     Route: 058
     Dates: start: 20040709, end: 20040809
  3. PEG-INTERFERON A-2A (RO 25-8310) [Suspect]
     Route: 058
     Dates: start: 20040809, end: 20040825
  4. RIBAVIRIN [Suspect]
     Route: 048
     Dates: start: 20050601, end: 20050623
  5. RIBAVIRIN [Suspect]
     Route: 048
     Dates: start: 20040709, end: 20040809
  6. RIBAVIRIN [Suspect]
     Route: 048
     Dates: start: 20040809, end: 20040825
  7. RIBAVIRIN [Suspect]
     Route: 048
     Dates: start: 20040825, end: 20040830
  8. RIBAVIRIN [Suspect]
     Route: 048
     Dates: start: 20040830, end: 20041014
  9. RIBAVIRIN [Suspect]
     Route: 048
     Dates: start: 20041014, end: 20041104
  10. RIBAVIRIN [Suspect]
     Route: 048
     Dates: start: 20041104, end: 20041230
  11. RIBAVIRIN [Suspect]
     Route: 048
     Dates: start: 20041230, end: 20050328
  12. RIBAVIRIN [Suspect]
     Route: 048
     Dates: start: 20050328, end: 20050406
  13. RIBAVIRIN [Suspect]
     Route: 048
     Dates: start: 20050406, end: 20050518
  14. RIBAVIRIN [Suspect]
     Route: 048
     Dates: start: 20050518, end: 20050601

REACTIONS (21)
  - ARTHRALGIA [None]
  - BLOOD TEST ABNORMAL [None]
  - BREAST DISCOMFORT [None]
  - CHEST PAIN [None]
  - DEHYDRATION [None]
  - DYSPNOEA [None]
  - FATIGUE [None]
  - GENERAL PHYSICAL HEALTH DETERIORATION [None]
  - HEART RATE INCREASED [None]
  - HERPES SIMPLEX [None]
  - LIVER PALPABLE SUBCOSTAL [None]
  - MUSCULOSKELETAL PAIN [None]
  - MYALGIA [None]
  - NIGHT SWEATS [None]
  - PERICARDIAL EFFUSION [None]
  - PLEURAL HAEMORRHAGE [None]
  - POLYSEROSITIS [None]
  - PYREXIA [None]
  - SPLENOMEGALY [None]
  - STAPHYLOCOCCAL INFECTION [None]
  - WEIGHT DECREASED [None]
